FAERS Safety Report 12987464 (Version 4)
Quarter: 2017Q3

REPORT INFORMATION
  Report Type: Spontaneous
  Country: US (occurrence: US)
  Receive Date: 20161130
  Receipt Date: 20170705
  Transmission Date: 20171127
  Serious: Yes (Hospitalization, Disabling)
  Sender: FDA-Public Use
  Company Number: US-IMPAX LABORATORIES, INC-2016-IPXL-02246

PATIENT
  Age: 81 Year
  Sex: Male
  Weight: 78 kg

DRUGS (1)
  1. RYTARY [Suspect]
     Active Substance: CARBIDOPA\LEVODOPA
     Indication: PARKINSON^S DISEASE
     Dosage: 61.25/245 MG, TID
     Route: 048
     Dates: start: 20160913

REACTIONS (4)
  - Dementia [Unknown]
  - Tremor [Not Recovered/Not Resolved]
  - Herpes zoster [Recovering/Resolving]
  - Macular degeneration [Unknown]

NARRATIVE: CASE EVENT DATE: 20160913
